FAERS Safety Report 24063122 (Version 2)
Quarter: 2024Q3

REPORT INFORMATION
  Report Type: Report from Study
  Country: GB (occurrence: GB)
  Receive Date: 20240709
  Receipt Date: 20240726
  Transmission Date: 20241017
  Serious: Yes (Other)
  Sender: TEVA
  Company Number: GB-TEVA-VS-3215353

PATIENT
  Sex: Male

DRUGS (6)
  1. PREDNISOLONE [Suspect]
     Active Substance: PREDNISOLONE
     Indication: Autoinflammatory disease
     Route: 065
  2. PREDNISOLONE [Suspect]
     Active Substance: PREDNISOLONE
     Indication: Autoinflammatory disease
     Dosage: SCHEDULED TO WEAN OFF BY 5MG PER WEEK TO 5?MG/DAY
     Route: 065
  3. TOCILIZUMAB [Suspect]
     Active Substance: TOCILIZUMAB
     Indication: Autoinflammatory disease
     Dosage: UP-TITRATED
     Route: 058
  4. LEVETIRACETAM [Suspect]
     Active Substance: LEVETIRACETAM
     Indication: Encephalopathy
     Route: 065
  5. BARICITINIB [Suspect]
     Active Substance: BARICITINIB
     Indication: Autoinflammatory disease
     Dosage: INCREASED
     Route: 065
  6. BARICITINIB [Suspect]
     Active Substance: BARICITINIB
     Indication: Autoinflammatory disease
     Dosage: TIME INTERVAL: 0.33333333 DAYS: THRICE A DAY
     Route: 065

REACTIONS (4)
  - Drug ineffective [Unknown]
  - Behaviour disorder [Unknown]
  - Weight increased [Unknown]
  - Toxicity to various agents [Unknown]
